FAERS Safety Report 18461003 (Version 1)
Quarter: 2020Q4

REPORT INFORMATION
  Report Type: Spontaneous
  Country: JP (occurrence: JP)
  Receive Date: 20201104
  Receipt Date: 20201104
  Transmission Date: 20210114
  Serious: Yes (Life-Threatening, Hospitalization, Other)
  Sender: FDA-Public Use
  Company Number: JP-SCIEGEN-2019SCILIT00374

PATIENT
  Age: 73 Year
  Sex: Male

DRUGS (15)
  1. METFORMIN HYDROCHLORIDETABLETS [Suspect]
     Active Substance: METFORMIN HYDROCHLORIDE
     Indication: PRODUCT USED FOR UNKNOWN INDICATION
     Dosage: 200 TABLETS
     Route: 048
  2. SODIUM CARBOHYDRATE (SODIUM BICARBONATE) [Interacting]
     Active Substance: SODIUM BICARBONATE
     Indication: OVERDOSE
     Route: 065
  3. NORADRENALINE [Interacting]
     Active Substance: NOREPINEPHRINE
     Indication: OVERDOSE
     Route: 065
  4. DOPAMINE [Interacting]
     Active Substance: DOPAMINE HYDROCHLORIDE
     Indication: OVERDOSE
     Route: 065
  5. INSULIN [Interacting]
     Active Substance: INSULIN NOS
     Indication: BLOOD GLUCOSE FLUCTUATION
  6. CANDESARTAN. [Suspect]
     Active Substance: CANDESARTAN
     Indication: PRODUCT USED FOR UNKNOWN INDICATION
     Dosage: 29 TABLETS
     Route: 048
  7. GLIMEPIRIDE. [Suspect]
     Active Substance: GLIMEPIRIDE
     Indication: PRODUCT USED FOR UNKNOWN INDICATION
     Dosage: 78 TABLETS
     Route: 048
  8. POTASSIUM GLUCONATE [Interacting]
     Active Substance: POTASSIUM GLUCONATE
     Indication: HYPOKALAEMIA
     Dosage: 24 MEQ/L
     Route: 048
  9. CALCIUM GLUCONATE. [Interacting]
     Active Substance: CALCIUM GLUCONATE
     Indication: OVERDOSE
     Route: 065
  10. ALOGLIPTIN. [Suspect]
     Active Substance: ALOGLIPTIN
     Indication: PRODUCT USED FOR UNKNOWN INDICATION
     Dosage: 2 TABLETS
     Route: 048
  11. INSULIN [Interacting]
     Active Substance: INSULIN NOS
     Indication: BLOOD GLUCOSE FLUCTUATION
     Route: 065
  12. GLUCAGON. [Interacting]
     Active Substance: GLUCAGON
     Indication: OVERDOSE
  13. AMLODIPINE [Suspect]
     Active Substance: AMLODIPINE BESYLATE
     Indication: PRODUCT USED FOR UNKNOWN INDICATION
     Dosage: 84 TABLETS
     Route: 048
  14. KCL [Interacting]
     Active Substance: POTASSIUM CHLORIDE
     Indication: OVERDOSE
  15. FAT EMULSION NOS [Interacting]
     Active Substance: EGG PHOSPHOLIPIDS\SAFFLOWER OIL\SOYBEAN OIL
     Indication: OVERDOSE
     Route: 040

REACTIONS (12)
  - Lactic acidosis [Recovering/Resolving]
  - Vomiting [Unknown]
  - Hypotension [Recovering/Resolving]
  - Altered state of consciousness [Recovering/Resolving]
  - Heart rate decreased [Recovering/Resolving]
  - Toxicity to various agents [Recovered/Resolved]
  - Body temperature decreased [Recovering/Resolving]
  - Hypoglycaemia [Recovering/Resolving]
  - Hypokalaemia [Recovering/Resolving]
  - Drug interaction [Unknown]
  - Blood creatinine increased [Recovered/Resolved]
  - Overdose [Recovered/Resolved]
